FAERS Safety Report 6223813-2 (Version None)
Quarter: 2009Q2

REPORT INFORMATION
  Report Type: 
  Country: None (occurrence: None)
  Receive Date: 20090611
  Receipt Date: 20090327
  Transmission Date: 20091009
  Serious: No
  Sender: FDA-Public Use
  Company Number: US-ABBOTT-09P-163-0557851-00

PATIENT
  Sex: Female
  Weight: 104.42 kg

DRUGS (1)
  1. HUMIRA [Suspect]
     Indication: RHEUMATOID ARTHRITIS
     Dates: start: 20080804

REACTIONS (5)
  - BRONCHITIS [None]
  - COUGH [None]
  - LOWER RESPIRATORY TRACT INFECTION [None]
  - NIGHT SWEATS [None]
  - SINUS DISORDER [None]
